FAERS Safety Report 24657632 (Version 1)
Quarter: 2024Q4

REPORT INFORMATION
  Report Type: Spontaneous
  Country: US (occurrence: US)
  Receive Date: 20241125
  Receipt Date: 20241125
  Transmission Date: 20250115
  Serious: No
  Sender: STRIDES
  Company Number: US-STRIDES ARCOLAB LIMITED-2024SP009811

PATIENT
  Sex: Male

DRUGS (3)
  1. CYCLOSPORINE [Suspect]
     Active Substance: CYCLOSPORINE
     Indication: Product used for unknown indication
     Dosage: UNK
     Route: 065
     Dates: end: 20230430
  2. XOSPATA [Concomitant]
     Active Substance: GILTERITINIB
     Indication: Acute myeloid leukaemia
     Dosage: 80 MILLIGRAM, OD
     Route: 048
     Dates: start: 20230121
  3. XOSPATA [Concomitant]
     Active Substance: GILTERITINIB
     Dosage: 80 MILLIGRAM, OD
     Route: 048
     Dates: start: 20230121

REACTIONS (1)
  - Blood magnesium decreased [Unknown]
